FAERS Safety Report 19361608 (Version 4)
Quarter: 2021Q2

REPORT INFORMATION
  Report Type: Spontaneous
  Country: US (occurrence: US)
  Receive Date: 20210601
  Receipt Date: 20210622
  Transmission Date: 20210717
  Serious: No
  Sender: FDA-Public Use
  Company Number: US-ASTRAZENECA-2021A470949

PATIENT
  Sex: Male

DRUGS (11)
  1. BYDUREON BCISE [Suspect]
     Active Substance: EXENATIDE
     Indication: TYPE 2 DIABETES MELLITUS
     Route: 058
  2. MELOXICAM. [Concomitant]
     Active Substance: MELOXICAM
  3. FUROSEMIDE. [Concomitant]
     Active Substance: FUROSEMIDE
  4. TOPROL XL [Suspect]
     Active Substance: METOPROLOL SUCCINATE
     Dosage: UNKNOWN
     Route: 065
  5. AMLOPDOPINE [Concomitant]
  6. ATARVASTIN [Concomitant]
  7. METFORMIN [Concomitant]
     Active Substance: METFORMIN HYDROCHLORIDE
  8. PANTAPRAZOLE [Concomitant]
     Active Substance: PANTOPRAZOLE SODIUM
  9. GLIPIZIDE. [Concomitant]
     Active Substance: GLIPIZIDE
  10. AMITRIPTYLINE [Concomitant]
     Active Substance: AMITRIPTYLINE
  11. LISINOPRIL. [Concomitant]
     Active Substance: LISINOPRIL

REACTIONS (5)
  - Glycosylated haemoglobin increased [Unknown]
  - Device delivery system issue [Unknown]
  - Blood glucose fluctuation [Unknown]
  - Device leakage [Unknown]
  - Needle issue [Unknown]
